FAERS Safety Report 6908551-2 (Version None)
Quarter: 2010Q3

REPORT INFORMATION
  Report Type: 
  Country: None (occurrence: None)
  Receive Date: 20100805
  Receipt Date: 20100729
  Transmission Date: 20110219
  Serious: Yes (Other)
  Sender: FDA-Public Use
  Company Number: IT-PFIZER INC-2010079312

PATIENT
  Age: 78 Year
  Sex: Female

DRUGS (1)
  1. TORVAST [Suspect]
     Indication: HYPERCHOLESTEROLAEMIA
     Dosage: 20 MG, 1X/DAY
     Route: 048
     Dates: start: 20100210, end: 20100215

REACTIONS (1)
  - RASH GENERALISED [None]
